FAERS Safety Report 23507247 (Version 1)
Quarter: 2024Q1

REPORT INFORMATION
  Report Type: Report from Study
  Country: US (occurrence: US)
  Receive Date: 20240209
  Receipt Date: 20240209
  Transmission Date: 20240410
  Serious: Yes (Other)
  Sender: FDA-Public Use
  Company Number: US-EXELIXIS-CABO-24073631

PATIENT
  Sex: Female
  Weight: 78.912 kg

DRUGS (2)
  1. CABOMETYX [Suspect]
     Active Substance: CABOZANTINIB S-MALATE
     Indication: Thyroid cancer
     Dosage: 40 MG
     Dates: start: 20220824
  2. CABOMETYX [Suspect]
     Active Substance: CABOZANTINIB S-MALATE
     Dosage: 20 MG, QD
     Route: 048

REACTIONS (8)
  - Neuropathy peripheral [Unknown]
  - Tongue discomfort [Unknown]
  - Limb discomfort [Unknown]
  - Fatigue [Unknown]
  - Renal disorder [Unknown]
  - Carpal tunnel syndrome [Unknown]
  - Arteriosclerosis [Unknown]
  - Product dose omission issue [Unknown]
